FAERS Safety Report 21194765 (Version 3)
Quarter: 2023Q1

REPORT INFORMATION
  Report Type: Report from Study
  Country: NL (occurrence: None)
  Receive Date: 20220810
  Receipt Date: 20230202
  Transmission Date: 20230417
  Serious: Yes (Death, Life-Threatening, Hospitalization)
  Sender: FDA-Public Use
  Company Number: 2022A275849

PATIENT
  Age: 79 Year
  Sex: Male
  Weight: 91 kg

DRUGS (23)
  1. OSIMERTINIB [Suspect]
     Active Substance: OSIMERTINIB
     Indication: Non-small cell lung cancer
     Route: 048
     Dates: start: 20220520, end: 20220805
  2. CARBOPLATIN [Suspect]
     Active Substance: CARBOPLATIN
     Indication: Non-small cell lung cancer
     Dosage: 431.0MG ONCE/SINGLE ADMINISTRATION
     Route: 042
     Dates: start: 20220520, end: 20220520
  3. CARBOPLATIN [Suspect]
     Active Substance: CARBOPLATIN
     Indication: Non-small cell lung cancer
     Dosage: 462.0MG ONCE/SINGLE ADMINISTRATION
     Route: 042
     Dates: start: 20220610, end: 20220610
  4. CARBOPLATIN [Suspect]
     Active Substance: CARBOPLATIN
     Indication: Non-small cell lung cancer
     Dosage: 462.0MG ONCE/SINGLE ADMINISTRATION
     Route: 042
     Dates: start: 20220701, end: 20220701
  5. CARBOPLATIN [Suspect]
     Active Substance: CARBOPLATIN
     Indication: Non-small cell lung cancer
     Dosage: 462.0MG ONCE/SINGLE ADMINISTRATION
     Route: 042
     Dates: start: 20220722, end: 20220722
  6. PEMETREXED [Suspect]
     Active Substance: PEMETREXED
     Indication: Non-small cell lung cancer
     Dosage: 1062.0MG ONCE/SINGLE ADMINISTRATION
     Route: 042
     Dates: start: 20220520, end: 20220520
  7. PEMETREXED [Suspect]
     Active Substance: PEMETREXED
     Indication: Non-small cell lung cancer
     Dosage: 1062.0MG ONCE/SINGLE ADMINISTRATION
     Route: 042
     Dates: start: 20220610, end: 20220610
  8. PEMETREXED [Suspect]
     Active Substance: PEMETREXED
     Indication: Non-small cell lung cancer
     Dosage: 1062.0MG ONCE/SINGLE ADMINISTRATION
     Route: 042
     Dates: start: 20220701, end: 20220701
  9. PEMETREXED [Suspect]
     Active Substance: PEMETREXED
     Indication: Non-small cell lung cancer
     Dosage: 1062.0MG ONCE/SINGLE ADMINISTRATION
     Route: 042
     Dates: start: 20220722, end: 20220722
  10. ALFUZOSIN HYDROCHLORIDE [Concomitant]
     Active Substance: ALFUZOSIN HYDROCHLORIDE
     Indication: Bladder diverticulitis
     Route: 048
     Dates: start: 20220425
  11. DARIFENACINE [Concomitant]
     Indication: Bladder diverticulitis
     Route: 048
     Dates: start: 20220425
  12. ATORVASTATIN [Concomitant]
     Active Substance: ATORVASTATIN
     Indication: Hypertension
     Route: 048
     Dates: start: 20220425
  13. CANDESARTAN [Concomitant]
     Active Substance: CANDESARTAN
     Indication: Hypertension
     Route: 048
     Dates: start: 20220425
  14. HYDROCHLOROTHIAZIDE [Concomitant]
     Active Substance: HYDROCHLOROTHIAZIDE
     Indication: Hypertension
     Route: 048
     Dates: start: 20220425
  15. FELODIPINE [Concomitant]
     Active Substance: FELODIPINE
     Indication: Hypertension
     Route: 048
     Dates: start: 20220425
  16. BISOPROLOL [Concomitant]
     Active Substance: BISOPROLOL
     Indication: Hypertension
     Route: 048
     Dates: start: 20220425
  17. ASPIRIN [Concomitant]
     Active Substance: ASPIRIN
     Indication: Thrombosis
     Route: 048
     Dates: start: 20220425
  18. PANTROPRAZOLE [Concomitant]
     Indication: Gastric pH decreased
     Route: 048
     Dates: start: 20220425
  19. FOLIC ACID [Concomitant]
     Active Substance: FOLIC ACID
     Indication: Premedication
     Route: 048
     Dates: start: 20220511
  20. METOCLOPRAMIDE [Concomitant]
     Active Substance: METOCLOPRAMIDE
     Indication: Nausea
     Route: 048
     Dates: start: 20220511
  21. GRANISETRON [Concomitant]
     Active Substance: GRANISETRON
     Indication: Nausea
     Route: 048
     Dates: start: 20220511
  22. POLYETHYLENE GLYCOLS [Concomitant]
     Active Substance: POLYETHYLENE GLYCOLS
     Indication: Constipation
     Dosage: THREE TIMES A DAY
     Route: 048
     Dates: start: 20220511
  23. DEXAMETHASONE [Concomitant]
     Active Substance: DEXAMETHASONE
     Indication: Nausea
     Dosage: 4 MG TABLET
     Dates: start: 20220511, end: 20220803

REACTIONS (1)
  - Sepsis [Fatal]

NARRATIVE: CASE EVENT DATE: 20220729
